FAERS Safety Report 11755290 (Version 2)
Quarter: 2015Q4

REPORT INFORMATION
  Report Type: Other
  Country: US (occurrence: US)
  Receive Date: 20151119
  Receipt Date: 20151125
  Transmission Date: 20160304
  Serious: Yes (Hospitalization, Other)
  Sender: FDA-Public Use
  Company Number: US-ACORDA-ACO_115540_2015

PATIENT
  Sex: Female

DRUGS (1)
  1. AMPYRA [Suspect]
     Active Substance: DALFAMPRIDINE
     Indication: PRODUCT USED FOR UNKNOWN INDICATION
     Dosage: 10 MG, BID
     Route: 065

REACTIONS (7)
  - Septic shock [Unknown]
  - Therapy cessation [Unknown]
  - Cellulitis [Unknown]
  - Sepsis [Unknown]
  - Gait disturbance [Unknown]
  - Pneumonia [Unknown]
  - Renal failure [Unknown]
